FAERS Safety Report 22297537 (Version 1)
Quarter: 2023Q2

REPORT INFORMATION
  Report Type: Report from Study
  Country: US (occurrence: US)
  Receive Date: 20230509
  Receipt Date: 20230509
  Transmission Date: 20230721
  Serious: Yes (Hospitalization)
  Sender: FDA-Public Use
  Company Number: US-ORPHANEU-2023000883

PATIENT

DRUGS (3)
  1. CARBAGLU [Suspect]
     Active Substance: CARGLUMIC ACID
     Indication: Propionic acidaemia
     Dosage: 300 MILLIGRAM, Q8H (ACCREDO SHIPMENT DATE: 09-FEB-2023) (300 MG/KG/DAY))
     Dates: start: 202302, end: 2023
  2. CARBAGLU [Suspect]
     Active Substance: CARGLUMIC ACID
     Dosage: 200 MILLIGRAM, Q8H (200 MG/KG/DAY))
     Route: 048
     Dates: start: 2023
  3. LEVOCARNITINE [Concomitant]
     Active Substance: LEVOCARNITINE
     Indication: Product used for unknown indication

REACTIONS (6)
  - Gastrointestinal infection [Unknown]
  - Ammonia increased [Unknown]
  - Vomiting [Unknown]
  - Abdominal discomfort [Unknown]
  - Dermatitis diaper [Unknown]
  - Overdose [Recovered/Resolved]

NARRATIVE: CASE EVENT DATE: 20230201
